FAERS Safety Report 4293582-4 (Version None)
Quarter: 2004Q1

REPORT INFORMATION
  Report Type: 
  Country: None (occurrence: None)
  Receive Date: 20040212
  Receipt Date: 20030707
  Transmission Date: 20041129
  Serious: No
  Sender: FDA-Public Use
  Company Number: US-GLAXOSMITHKLINE-A0415414A

PATIENT
  Sex: Female

DRUGS (2)
  1. PAXIL [Suspect]
  2. PAXIL CR [Suspect]
     Dosage: 50MG PER DAY
     Route: 048

REACTIONS (2)
  - DRUG EFFECT DECREASED [None]
  - HYPERHIDROSIS [None]
